FAERS Safety Report 6185626-X (Version None)
Quarter: 2009Q2

REPORT INFORMATION
  Report Type: 
  Country: None (occurrence: None)
  Receive Date: 20090507
  Receipt Date: 20090505
  Transmission Date: 20091009
  Serious: Yes (Life-Threatening)
  Sender: FDA-Public Use
  Company Number: 2008TJ0245FU1

PATIENT
  Age: 29 Year
  Sex: Female

DRUGS (1)
  1. TWINJECT AUTO-INJECTOR (TWO PACK) [Suspect]
     Indication: ANAPHYLACTIC REACTION
     Dosage: 0.3 MG, PRN
     Dates: start: 20080929, end: 20080929

REACTIONS (1)
  - DEVICE FAILURE [None]
